FAERS Safety Report 5570732-0 (Version None)
Quarter: 2007Q4

REPORT INFORMATION
  Report Type: 
  Country: None (occurrence: None)
  Receive Date: 20071221
  Receipt Date: 20071211
  Transmission Date: 20080405
  Serious: Yes (Hospitalization)
  Sender: FDA-Public Use
  Company Number: FR-AVENTIS-200713987FR

PATIENT
  Age: 36 Year
  Sex: Female

DRUGS (9)
  1. FLAGYL [Suspect]
     Route: 048
     Dates: start: 20071002, end: 20071011
  2. SOLUPRED                           /00016201/ [Suspect]
     Route: 048
     Dates: start: 20070924, end: 20071110
  3. AUGMENTIN '125' [Suspect]
     Route: 048
     Dates: start: 20070924, end: 20071011
  4. PREVISCAN                          /00789001/ [Suspect]
     Indication: ANTIPHOSPHOLIPID SYNDROME
     Route: 048
     Dates: start: 20031001, end: 20071009
  5. TOCOPHEROL ALPHA [Suspect]
     Route: 048
     Dates: start: 20071004, end: 20071009
  6. LEVOTHYROX [Concomitant]
     Indication: HYPOTHYROIDISM
  7. PROZAC [Concomitant]
  8. DEPAMIDE [Concomitant]
  9. EQUANIL [Concomitant]

REACTIONS (3)
  - DRUG INTERACTION [None]
  - OVERDOSE [None]
  - TRAUMATIC HAEMATOMA [None]
